FAERS Safety Report 15328545 (Version 1)
Quarter: 2018Q3

REPORT INFORMATION
  Report Type: Report from Study
  Country: TR (occurrence: TR)
  Receive Date: 20180829
  Receipt Date: 20180829
  Transmission Date: 20181010
  Serious: Yes (Other)
  Sender: FDA-Public Use
  Company Number: TR-UCBSA-2018001850

PATIENT
  Age: 28 Year
  Sex: Female

DRUGS (1)
  1. CERTOLIZUMAB PEGOL [Suspect]
     Active Substance: CERTOLIZUMAB PEGOL
     Indication: RHEUMATOID ARTHRITIS
     Dosage: 400 MG, EV 2 WEEKS(QOW)
     Dates: start: 20170621

REACTIONS (2)
  - Premature delivery [Unknown]
  - Pregnancy [Unknown]

NARRATIVE: CASE EVENT DATE: 201712
